FAERS Safety Report 17468334 (Version 2)
Quarter: 2020Q2

REPORT INFORMATION
  Report Type: Spontaneous
  Country: US (occurrence: US)
  Receive Date: 20200227
  Receipt Date: 20200519
  Transmission Date: 20200713
  Serious: Yes (Other)
  Sender: FDA-Public Use
  Company Number: US-AKORN PHARMACEUTICALS-2020AKN00252

PATIENT
  Age: 20 Year
  Sex: Female
  Weight: 54.42 kg

DRUGS (3)
  1. SPIRONOLACTONE. [Concomitant]
     Active Substance: SPIRONOLACTONE
  2. MYORISAN [Suspect]
     Active Substance: ISOTRETINOIN
     Dosage: 30 MG, 1X/DAY
     Dates: start: 20200125, end: 20200214
  3. FISH OIL [Concomitant]
     Active Substance: FISH OIL

REACTIONS (6)
  - Depressed mood [Recovering/Resolving]
  - Malaise [Recovering/Resolving]
  - Feeling abnormal [Recovering/Resolving]
  - Off label use [Recovered/Resolved]
  - Feeling of despair [Recovering/Resolving]
  - Affect lability [Recovered/Resolved]

NARRATIVE: CASE EVENT DATE: 2020
